FAERS Safety Report 21378849 (Version 1)
Quarter: 2022Q3

REPORT INFORMATION
  Report Type: Spontaneous
  Country: DE (occurrence: DE)
  Receive Date: 20220927
  Receipt Date: 20220927
  Transmission Date: 20221027
  Serious: Yes (Hospitalization)
  Sender: FDA-Public Use
  Company Number: DE-NOVARTISPH-NVSC2022DE216501

PATIENT
  Age: 61 Year
  Sex: Male
  Weight: 100 kg

DRUGS (8)
  1. ASPIRIN [Suspect]
     Active Substance: ASPIRIN
     Indication: Product used for unknown indication
     Dosage: 100 MG, QD (0-1-0-0)
     Route: 065
  2. EDOXABAN [Suspect]
     Active Substance: EDOXABAN
     Indication: Product used for unknown indication
     Dosage: 60 MG, QD (1-0-0-0)
     Route: 065
  3. TILIDINE [Concomitant]
     Active Substance: TILIDINE
     Indication: Product used for unknown indication
     Dosage: 50 MG (BEDARF)
     Route: 065
  4. BISOPROLOL [Concomitant]
     Active Substance: BISOPROLOL
     Indication: Product used for unknown indication
     Dosage: 5 MG, QD (1-0-0-0)
     Route: 065
  5. CANDESARTAN [Concomitant]
     Active Substance: CANDESARTAN
     Indication: Product used for unknown indication
     Dosage: 16 MG, QD (1-0-0-0)
     Route: 065
  6. PANTOPRAZOLE [Concomitant]
     Active Substance: PANTOPRAZOLE
     Indication: Product used for unknown indication
     Dosage: 20 MG, QD (1-0-0-0)
     Route: 065
  7. EZETIMIBE [Concomitant]
     Active Substance: EZETIMIBE
     Indication: Product used for unknown indication
     Dosage: 10 MG, QD (0-0-1-0)
     Route: 065
  8. SIMVASTATIN [Concomitant]
     Active Substance: SIMVASTATIN
     Indication: Product used for unknown indication
     Dosage: 80 MG, QD (0-0-1-0)
     Route: 065

REACTIONS (6)
  - Haematuria [Unknown]
  - Urogenital haemorrhage [Unknown]
  - General physical health deterioration [Unknown]
  - Condition aggravated [Unknown]
  - Atrial fibrillation [Unknown]
  - Anaemia [Unknown]
